FAERS Safety Report 18213310 (Version 2)
Quarter: 2021Q2

REPORT INFORMATION
  Report Type: Spontaneous
  Country: US (occurrence: US)
  Receive Date: 20200831
  Receipt Date: 20210415
  Transmission Date: 20210717
  Serious: Yes (Disabling)
  Sender: FDA-Public Use
  Company Number: US-SA-2020SA229199

PATIENT
  Age: 21 Year
  Sex: Female

DRUGS (1)
  1. DUPIXENT [Suspect]
     Active Substance: DUPILUMAB
     Dosage: 300 MG, QOW
     Route: 058
     Dates: start: 201903

REACTIONS (5)
  - Bedridden [Unknown]
  - Influenza immunisation [Unknown]
  - Illness [Unknown]
  - Abdominal pain lower [Unknown]
  - Back pain [Unknown]

NARRATIVE: CASE EVENT DATE: 201910
